FAERS Safety Report 17010536 (Version 1)
Quarter: 2019Q4

REPORT INFORMATION
  Report Type: Spontaneous
  Country: US (occurrence: US)
  Receive Date: 20191107
  Receipt Date: 20191107
  Transmission Date: 20200122
  Serious: Yes (Hospitalization)
  Sender: FDA-Public Use
  Company Number: None

PATIENT
  Sex: Male

DRUGS (9)
  1. ARMOUR THYRO [Concomitant]
  2. IODINE. [Concomitant]
     Active Substance: IODINE
  3. LISINOPRIL. [Concomitant]
     Active Substance: LISINOPRIL
  4. QVAR [Concomitant]
     Active Substance: BECLOMETHASONE DIPROPIONATE
  5. ALBUTEROL. [Concomitant]
     Active Substance: ALBUTEROL
  6. CARVEDILOL. [Concomitant]
     Active Substance: CARVEDILOL
  7. PROBIOTIC [Concomitant]
     Active Substance: PROBIOTICS NOS
  8. CIMZIA [Suspect]
     Active Substance: CERTOLIZUMAB PEGOL
     Indication: CROHN^S DISEASE
     Dosage: ?          OTHER FREQUENCY:Q28DAYS;?
     Route: 058
  9. K-TAB [Concomitant]
     Active Substance: POTASSIUM CHLORIDE

REACTIONS (3)
  - Insurance issue [None]
  - Crohn^s disease [None]
  - Product dose omission [None]
